FAERS Safety Report 7903933-4 (Version None)
Quarter: 2011Q4

REPORT INFORMATION
  Report Type: 
  Country: None (occurrence: None)
  Receive Date: 20111109
  Receipt Date: 20111101
  Transmission Date: 20120403
  Serious: Yes (Other)
  Sender: FDA-Public Use
  Company Number: JP-BAYER-2011-104727

PATIENT
  Age: 83 Year
  Sex: Male

DRUGS (1)
  1. ASPIRIN [Suspect]
     Route: 048

REACTIONS (6)
  - INFECTIOUS PERITONITIS [None]
  - ILEAL PERFORATION [None]
  - ILEAL FISTULA [None]
  - SMALL INTESTINE ULCER [None]
  - GASTROINTESTINAL PERFORATION [None]
  - BACTERIAL TRANSLOCATION [None]
